FAERS Safety Report 5170359-9 (Version None)
Quarter: 2006Q4

REPORT INFORMATION
  Report Type: 
  Country: None (occurrence: None)
  Receive Date: 20061204
  Receipt Date: 20061122
  Transmission Date: 20070319
  Serious: Yes (Hospitalization)
  Sender: FDA-Public Use
  Company Number: 2006129962

PATIENT
  Age: 67 Year
  Sex: Male
  Weight: 55.3 kg

DRUGS (10)
  1. SUTENT [Suspect]
     Indication: METASTATIC RENAL CELL CARCINOMA
     Dosage: SEE IMAGE
     Route: 048
     Dates: start: 20060831, end: 20060927
  2. SUTENT [Suspect]
     Indication: METASTATIC RENAL CELL CARCINOMA
     Dosage: SEE IMAGE
     Route: 048
     Dates: start: 20061012, end: 20061019
  3. LEVOTHYROXINE SODIUM [Concomitant]
  4. MESALAMINE [Concomitant]
  5. SIMVASTATIN [Concomitant]
  6. RAMIPRIL [Concomitant]
  7. BISOPROLOL FUMARATE [Concomitant]
  8. TAMUSLOSIN (TAMSULOSIN) [Concomitant]
  9. SENNA (SENNA) [Concomitant]
  10. DOMPERIDONE (DOMPERIDONE) [Concomitant]

REACTIONS (3)
  - MYOCARDIAL ISCHAEMIA [None]
  - PALMAR-PLANTAR ERYTHRODYSAESTHESIA SYNDROME [None]
  - STOMATITIS [None]
